FAERS Safety Report 16388177 (Version 1)
Quarter: 2019Q2

REPORT INFORMATION
  Report Type: Spontaneous
  Country: FR (occurrence: FR)
  Receive Date: 20190604
  Receipt Date: 20190604
  Transmission Date: 20190711
  Serious: Yes (Hospitalization)
  Sender: FDA-Public Use
  Company Number: PHHY2019FR124444

PATIENT
  Age: 86 Year
  Sex: Male
  Weight: 65 kg

DRUGS (2)
  1. COLCHICINE OPOCALCIUM [Suspect]
     Active Substance: COLCHICINE
     Indication: GOUT
     Dosage: 0.5 MG, QD
     Route: 048
     Dates: start: 20190315, end: 20190424
  2. ALLOPURINOL. [Suspect]
     Active Substance: ALLOPURINOL
     Indication: GOUT
     Dosage: UNK (NP)
     Route: 048

REACTIONS (4)
  - Rash macular [Recovered/Resolved]
  - Conjunctivitis [Recovered/Resolved]
  - Rash pruritic [Recovered/Resolved]
  - Eosinophilia [Recovered/Resolved]

NARRATIVE: CASE EVENT DATE: 20190404
